FAERS Safety Report 9287971 (Version 2)
Quarter: 2013Q2

REPORT INFORMATION
  Report Type: Spontaneous
  Country: US (occurrence: US)
  Receive Date: 20130514
  Receipt Date: 20130527
  Transmission Date: 20140414
  Serious: Yes (Hospitalization)
  Sender: FDA-Public Use
  Company Number: US-BRISTOL-MYERS SQUIBB COMPANY-18872044

PATIENT
  Age: 80 Year
  Sex: Male

DRUGS (4)
  1. ELIQUIS [Suspect]
     Indication: ATRIAL FIBRILLATION
     Route: 048
     Dates: start: 20130405, end: 20130513
  2. LOTENSIN [Concomitant]
  3. DOXAZOSIN [Concomitant]
  4. METOPROLOL TARTRATE [Concomitant]

REACTIONS (1)
  - Cardiac murmur [Unknown]
